FAERS Safety Report 7509907-X (Version None)
Quarter: 2011Q2

REPORT INFORMATION
  Report Type: 
  Country: None (occurrence: None)
  Receive Date: 20110527
  Receipt Date: 20110518
  Transmission Date: 20111010
  Serious: Yes (Hospitalization, Other)
  Sender: FDA-Public Use
  Company Number: CA-ASTRAZENECA-2011SE31107

PATIENT
  Age: 82 Year
  Sex: Male
  Weight: 97 kg

DRUGS (8)
  1. VITALUX LUTEIN [Concomitant]
     Dosage: UNKNOWN DOSE TWO TIMES A DAY
     Route: 048
  2. FISH OIL [Interacting]
     Dosage: UNKNOWN DOSE TWO TIMES A DAY
     Route: 048
  3. MULTI-VITAMIN [Concomitant]
     Dosage: UNKNOWN DOSE DAILY
     Route: 048
  4. SIMVASTATIN [Concomitant]
     Route: 048
  5. TYLENOL Z [Concomitant]
     Dosage: UNKNOWN DOSE AS REQUIRED
  6. NAPROXEN [Interacting]
     Dosage: 500 MG THREE TIMES A DAY AS REQUIERD
  7. ZOLADEX [Suspect]
     Indication: PROSTATE CANCER
     Route: 058
     Dates: start: 20110501
  8. FINASTERIDE [Concomitant]
     Route: 048

REACTIONS (4)
  - INTRA-ABDOMINAL HAEMATOMA [None]
  - PNEUMONIA [None]
  - DRUG INTERACTION [None]
  - HAEMATOMA [None]
